FAERS Safety Report 8829409 (Version 1)
Quarter: 2012Q4

REPORT INFORMATION
  Report Type: Spontaneous
  Country: US (occurrence: None)
  Receive Date: 20121005
  Receipt Date: 20121005
  Transmission Date: 20130627
  Serious: Yes (Disabling, Other)
  Sender: FDA-Public Use
  Company Number: None

PATIENT
  Age: 84 Year
  Sex: Female
  Weight: 61.24 kg

DRUGS (1)
  1. ZOCOR [Suspect]
     Indication: CHOLESTEROL
     Dosage: 40mg/day per day
     Dates: start: 20110602, end: 20120205

REACTIONS (1)
  - Cardiac operation [None]
